FAERS Safety Report 7344115-7 (Version None)
Quarter: 2011Q1

REPORT INFORMATION
  Report Type: 
  Country: None (occurrence: None)
  Receive Date: 20110310
  Receipt Date: 20100621
  Transmission Date: 20110831
  Serious: No
  Sender: FDA-Public Use
  Company Number: A0866264A

PATIENT
  Age: 57 Year
  Sex: Female

DRUGS (1)
  1. NICORETTE (MINT) [Suspect]
     Dates: start: 20100619, end: 20100619

REACTIONS (2)
  - STOMATITIS [None]
  - OEDEMA MOUTH [None]
